FAERS Safety Report 5707921-8 (Version None)
Quarter: 2008Q2

REPORT INFORMATION
  Report Type: 
  Country: None (occurrence: None)
  Receive Date: 20080417
  Receipt Date: 20080407
  Transmission Date: 20081010
  Serious: Yes (Hospitalization)
  Sender: FDA-Public Use
  Company Number: FR-AVENTIS-200811250FR

PATIENT
  Age: 11 Year
  Sex: Female

DRUGS (6)
  1. TRAMADOL HCL [Suspect]
     Route: 048
     Dates: start: 20070327, end: 20070327
  2. BIRODOGYL [Suspect]
     Route: 048
     Dates: start: 20070327, end: 20070327
  3. MYOLASTAN [Suspect]
     Route: 048
     Dates: start: 20070327, end: 20070327
  4. ERCEFURYL [Suspect]
     Route: 048
     Dates: start: 20070327, end: 20070327
  5. PARACETAMOL [Suspect]
     Route: 048
     Dates: start: 20070327, end: 20070327
  6. DICLOFENAC SODIUM [Suspect]
     Route: 048
     Dates: start: 20070327, end: 20070327

REACTIONS (2)
  - DIZZINESS [None]
  - VOMITING [None]
